FAERS Safety Report 4744242-4 (Version None)
Quarter: 2005Q3

REPORT INFORMATION
  Report Type: 
  Country: None (occurrence: None)
  Receive Date: 20050809
  Receipt Date: 20050731
  Transmission Date: 20060218
  Serious: Yes (Hospitalization)
  Sender: FDA-Public Use
  Company Number: 2005BI014302

PATIENT
  Age: 37 Year
  Sex: Female
  Weight: 67.5 kg

DRUGS (1)
  1. AVONEX [Suspect]
     Indication: MULTIPLE SCLEROSIS
     Dosage: 30 UG;QW; IM
     Route: 030
     Dates: start: 20031101, end: 20050501

REACTIONS (8)
  - CONDITION AGGRAVATED [None]
  - DIFFICULTY IN WALKING [None]
  - MENORRHAGIA [None]
  - OPTIC NEURITIS [None]
  - PSORIASIS [None]
  - SENSATION OF HEAVINESS [None]
  - SENSORY DISTURBANCE [None]
  - STRESS [None]
